FAERS Safety Report 6775493-5 (Version None)
Quarter: 2010Q2

REPORT INFORMATION
  Report Type: 
  Country: None (occurrence: None)
  Receive Date: 20100617
  Receipt Date: 20100615
  Transmission Date: 20101027
  Serious: Yes (Hospitalization)
  Sender: FDA-Public Use
  Company Number: FR-SANOFI-AVENTIS-2010SA034200

PATIENT
  Age: 43 Year
  Sex: Male

DRUGS (4)
  1. RIFADIN [Suspect]
     Route: 042
     Dates: start: 20091027
  2. TAVANIC [Suspect]
     Route: 042
     Dates: start: 20091026, end: 20091028
  3. ROCEPHIN [Suspect]
     Dosage: DOSE:2 UNIT(S)
     Route: 042
     Dates: start: 20091026, end: 20091029
  4. AMOXICILLIN [Concomitant]
     Indication: LUNG INFECTION
     Route: 065
     Dates: start: 20091024, end: 20091026

REACTIONS (3)
  - ALTERED STATE OF CONSCIOUSNESS [None]
  - DIARRHOEA [None]
  - SOMNOLENCE [None]
